FAERS Safety Report 21573816 (Version 1)
Quarter: 2022Q4

REPORT INFORMATION
  Report Type: Report from Study
  Country: US (occurrence: US)
  Receive Date: 20221109
  Receipt Date: 20221109
  Transmission Date: 20230113
  Serious: No
  Sender: FDA-Public Use
  Company Number: US-INCYTE CORPORATION-2022IN009692

PATIENT

DRUGS (2)
  1. JAKAFI [Suspect]
     Active Substance: RUXOLITINIB
     Indication: Myelofibrosis
     Dosage: 10 MILLIGRAM, BID
     Route: 065
  2. RETACRIT [Concomitant]
     Active Substance: EPOETIN ALFA-EPBX
     Indication: Product used for unknown indication
     Route: 065

REACTIONS (1)
  - Product availability issue [Unknown]
